FAERS Safety Report 8488192-9 (Version None)
Quarter: 2012Q3

REPORT INFORMATION
  Report Type: 
  Country: None (occurrence: None)
  Receive Date: 20120705
  Receipt Date: 20120621
  Transmission Date: 20120928
  Serious: Yes (Other)
  Sender: FDA-Public Use
  Company Number: US-ASTELLAS-2012US005795

PATIENT
  Age: 73 Year
  Sex: Male

DRUGS (2)
  1. POSACONAZOLE [Concomitant]
     Indication: PRODUCT USED FOR UNKNOWN INDICATION
     Dosage: UNK
     Route: 065
  2. AMBISOME [Suspect]
     Indication: PROPHYLAXIS
     Dosage: 9 MG/KG, WEEKLY
     Route: 065

REACTIONS (1)
  - ELECTROLYTE IMBALANCE [None]
